FAERS Safety Report 10990742 (Version 1)
Quarter: 2015Q2

REPORT INFORMATION
  Report Type: Report from Study
  Country: GB (occurrence: GB)
  Receive Date: 20150406
  Receipt Date: 20150406
  Transmission Date: 20150821
  Serious: Yes (Other)
  Sender: FDA-Public Use
  Company Number: GB-BRISTOL-MYERS SQUIBB COMPANY-20574471

PATIENT
  Age: 71 Year
  Sex: Male
  Weight: 111 kg

DRUGS (15)
  1. EZETIMIBE. [Concomitant]
     Active Substance: EZETIMIBE
  2. VITAMIN B [Concomitant]
     Active Substance: VITAMIN B
  3. ZOPICLONE [Concomitant]
     Active Substance: ZOPICLONE
  4. MORPHINE SULFATE IR [Concomitant]
     Dosage: TABLETS
  5. AMLODIPINE [Concomitant]
     Active Substance: AMLODIPINE BESYLATE
  6. PREGABALIN. [Concomitant]
     Active Substance: PREGABALIN
  7. SEVREDOL [Concomitant]
     Active Substance: MORPHINE
     Dosage: UNK
     Dates: start: 20140227
  8. NIVOLUMAB [Suspect]
     Active Substance: NIVOLUMAB
     Indication: METASTATIC MALIGNANT MELANOMA
     Dosage: 1DF: 1MG/KG AND 3MG/KG EVERY TWO WEEKS  3MG/KG EVERY THREE WEEKS  INTER ON:27FEB14
     Route: 042
     Dates: start: 20140206
  9. PARACETAMOL [Concomitant]
     Active Substance: ACETAMINOPHEN
  10. PREDNISOLONE. [Concomitant]
     Active Substance: PREDNISOLONE
  11. ALLOPURINOL. [Concomitant]
     Active Substance: ALLOPURINOL
  12. CLOPIDOGREL BISULFATE. [Concomitant]
     Active Substance: CLOPIDOGREL BISULFATE
  13. SENNA [Concomitant]
     Active Substance: SENNA LEAF\SENNOSIDES\SENNOSIDES A AND B
  14. TRAMADOL [Concomitant]
     Active Substance: TRAMADOL
  15. METHYLPREDNISOLONE. [Concomitant]
     Active Substance: METHYLPREDNISOLONE

REACTIONS (1)
  - Neuropathy peripheral [Recovered/Resolved with Sequelae]

NARRATIVE: CASE EVENT DATE: 20140307
